FAERS Safety Report 5503117-3 (Version None)
Quarter: 2007Q4

REPORT INFORMATION
  Report Type: 
  Country: None (occurrence: None)
  Receive Date: 20071029
  Receipt Date: 20071029
  Transmission Date: 20080405
  Serious: Yes (Hospitalization, Other)
  Sender: FDA-Public Use
  Company Number: None

PATIENT
  Age: 2 Year
  Sex: Male
  Weight: 13.6079 kg

DRUGS (1)
  1. SILVER NITRATE [Suspect]
     Indication: PENIS DISORDER
     Dates: start: 20071024, end: 20071024

REACTIONS (9)
  - DRUG PRESCRIBING ERROR [None]
  - INFECTION [None]
  - IRRITABILITY [None]
  - PAIN [None]
  - PENILE SWELLING [None]
  - SCAR [None]
  - SKIN DISCOLOURATION [None]
  - SKIN EXFOLIATION [None]
  - THERAPEUTIC PRODUCT INEFFECTIVE [None]
